FAERS Safety Report 5277837-2 (Version None)
Quarter: 2007Q1

REPORT INFORMATION
  Report Type: 
  Country: None (occurrence: None)
  Receive Date: 20070321
  Receipt Date: 20070312
  Transmission Date: 20070707
  Serious: Yes (Hospitalization)
  Sender: FDA-Public Use
  Company Number: 238120

PATIENT
  Age: 73 Year
  Sex: Male
  Weight: 87.1 kg

DRUGS (18)
  1. LUCENTIS [Suspect]
     Indication: RETINAL VEIN OCCLUSION
     Dosage: 0.05 MG
     Dates: start: 20061221
  2. TOPROL-XL [Concomitant]
  3. DIOVAN [Concomitant]
  4. VYTORIN [Concomitant]
  5. NEXIUM [Concomitant]
  6. FUROSEMIDE [Concomitant]
  7. POTASSIUM CHLORIDE [Concomitant]
  8. ASPIRIN [Concomitant]
  9. ADVAIR DISKUS 100/50 [Concomitant]
  10. ASCORBIC ACID [Concomitant]
  11. VITAMIN E [Concomitant]
  12. COQ-10 (UBIDECARENONE) [Concomitant]
  13. ELESTAT (EPINASTINE HYDROCHLORIDE) [Concomitant]
  14. TIMOLOL (TIMOLOL MALEATE) [Concomitant]
  15. TYLENOL W/ CODEINE NO. 3 [Concomitant]
  16. GINKGO (GINKGO BILOBA) [Concomitant]
  17. B-COMPLEX (VITAMIN B COMPLEX) [Concomitant]
  18. MULTIVITAMIN (MULTIVITAMINS NOS) [Concomitant]

REACTIONS (1)
  - PNEUMONIA [None]
